FAERS Safety Report 10922918 (Version 2)
Quarter: 2015Q1

REPORT INFORMATION
  Report Type: Spontaneous
  Country: JP (occurrence: JP)
  Receive Date: 20150317
  Receipt Date: 20150325
  Transmission Date: 20150721
  Serious: Yes (Death)
  Sender: FDA-Public Use
  Company Number: JP-PFIZER INC-2015080333

PATIENT
  Age: 8 Decade
  Sex: Female

DRUGS (1)
  1. INLYTA [Suspect]
     Active Substance: AXITINIB
     Indication: RENAL CELL CARCINOMA
     Dosage: UNK
     Dates: start: 20130130

REACTIONS (3)
  - Decreased appetite [Recovered/Resolved]
  - Renal cell carcinoma [Fatal]
  - Disease progression [Fatal]

NARRATIVE: CASE EVENT DATE: 20130411
